FAERS Safety Report 4898950-5 (Version None)
Quarter: 2006Q1

REPORT INFORMATION
  Report Type: 
  Country: None (occurrence: None)
  Receive Date: 20060127
  Receipt Date: 20060117
  Transmission Date: 20060701
  Serious: Yes (Death, Other)
  Sender: FDA-Public Use
  Company Number: US200512004468

PATIENT
  Age: 58 Year
  Sex: Female

DRUGS (5)
  1. XIGRIS [Suspect]
     Indication: SEPSIS
     Dosage: 24 UG/KG/HR, INTRAVENOUS
     Route: 042
     Dates: start: 20051228
  2. LEVOPHED [Concomitant]
  3. VASOPRESSIN INJECTION (VASOPRESSIN INJECTION) [Concomitant]
  4. DOPAMINE HCL [Concomitant]
  5. HEPARIN SODIUM [Concomitant]

REACTIONS (4)
  - ACTIVATED PARTIAL THROMBOPLASTIN TIME PROLONGED [None]
  - HEPATIC FAILURE [None]
  - INTERNATIONAL NORMALISED RATIO INCREASED [None]
  - THERAPY NON-RESPONDER [None]
